FAERS Safety Report 4618080-7 (Version None)
Quarter: 2005Q1

REPORT INFORMATION
  Report Type: 
  Country: None (occurrence: None)
  Receive Date: 20050322
  Receipt Date: 20050308
  Transmission Date: 20050727
  Serious: Yes (Hospitalization)
  Sender: FDA-Public Use
  Company Number: DSA_26062_2005

PATIENT
  Sex: Female

DRUGS (3)
  1. TAVOR [Suspect]
     Dosage: 7.5 MG ONCE PO
     Route: 048
     Dates: start: 20050306, end: 20050306
  2. LAROXYL [Suspect]
     Dates: start: 20050306, end: 20050306
  3. NORTRILEN [Suspect]
     Dates: start: 20050306, end: 30050306

REACTIONS (5)
  - DIARRHOEA [None]
  - DYSPNOEA [None]
  - INTENTIONAL MISUSE [None]
  - PAIN [None]
  - TACHYCARDIA [None]
